FAERS Safety Report 9150534 (Version 1)
Quarter: 2013Q1

REPORT INFORMATION
  Report Type: Spontaneous
  Country: US (occurrence: US)
  Receive Date: 20130308
  Receipt Date: 20130308
  Transmission Date: 20140127
  Serious: No
  Sender: FDA-Public Use
  Company Number: US-ENDO PHARMACEUTICALS INC.-OPCR20121127

PATIENT
  Age: 47 Year
  Sex: Female

DRUGS (3)
  1. OPANA ER [Suspect]
     Indication: PRODUCT USED FOR UNKNOWN INDICATION
     Route: 048
     Dates: start: 201205, end: 201205
  2. OPANA ER [Suspect]
     Route: 048
     Dates: start: 201205, end: 201205
  3. OPANA [Concomitant]
     Indication: BREAKTHROUGH PAIN
     Dosage: UNK
     Route: 048
     Dates: start: 201109

REACTIONS (4)
  - Rash [Unknown]
  - Nausea [Unknown]
  - Vomiting [Unknown]
  - Hot flush [Unknown]
